FAERS Safety Report 19467012 (Version 1)
Quarter: 2021Q2

REPORT INFORMATION
  Report Type: Spontaneous
  Country: US (occurrence: US)
  Receive Date: 20210628
  Receipt Date: 20210628
  Transmission Date: 20210717
  Serious: No
  Sender: FDA-Public Use
  Company Number: US-TEVA-2021-US-1926220

PATIENT

DRUGS (1)
  1. GALZIN [Suspect]
     Active Substance: ZINC ACETATE
     Route: 065

REACTIONS (2)
  - Hypertension [Unknown]
  - Cough [Unknown]
